FAERS Safety Report 18356924 (Version 2)
Quarter: 2020Q4

REPORT INFORMATION
  Report Type: Spontaneous
  Country: IN (occurrence: IN)
  Receive Date: 20201007
  Receipt Date: 20201015
  Transmission Date: 20210114
  Serious: Yes (Other)
  Sender: FDA-Public Use
  Company Number: NVSC2020IN269752

PATIENT
  Age: 65 Year
  Sex: Male

DRUGS (1)
  1. DICLOFENAC [Suspect]
     Active Substance: DICLOFENAC
     Indication: TOOTHACHE
     Dosage: 50 MG (1-1-1-1-1-1)
     Route: 065

REACTIONS (2)
  - Product use in unapproved indication [Unknown]
  - Acute kidney injury [Recovering/Resolving]
